FAERS Safety Report 18639054 (Version 1)
Quarter: 2020Q4

REPORT INFORMATION
  Report Type: Spontaneous
  Country: US (occurrence: US)
  Receive Date: 20201219
  Receipt Date: 20201219
  Transmission Date: 20210114
  Serious: Yes (Life-Threatening, Hospitalization)
  Sender: FDA-Public Use
  Company Number: US-AXELLIA-003591

PATIENT
  Age: 40 Year
  Sex: Female
  Weight: 92.3 kg

DRUGS (2)
  1. VANCOMYCIN [Suspect]
     Active Substance: VANCOMYCIN
     Indication: END STAGE RENAL DISEASE
     Dosage: STRENGTH: 1000 MG
     Route: 042
     Dates: start: 20200124, end: 20200124
  2. VANCOMYCIN [Suspect]
     Active Substance: VANCOMYCIN
     Indication: HYPERPARATHYROIDISM SECONDARY
     Route: 042
     Dates: start: 20190101

REACTIONS (1)
  - Drug hypersensitivity [Unknown]

NARRATIVE: CASE EVENT DATE: 20200124
